FAERS Safety Report 11880810 (Version 1)
Quarter: 2015Q4

REPORT INFORMATION
  Report Type: Spontaneous
  Country: ZA (occurrence: ZA)
  Receive Date: 20151230
  Receipt Date: 20151230
  Transmission Date: 20160305
  Serious: Yes (Hospitalization)
  Sender: FDA-Public Use
  Company Number: ZA-PFIZER INC-2015473042

PATIENT
  Age: 2 Year
  Sex: Male

DRUGS (1)
  1. ALPRAZOLAM. [Suspect]
     Active Substance: ALPRAZOLAM
     Dosage: UNCERTAIN NUMBER OF ALPRAZOLAM 0.5MG TABLETS
     Dates: start: 20151228

REACTIONS (3)
  - Disorientation [Unknown]
  - Accidental exposure to product by child [Unknown]
  - Gait disturbance [Unknown]

NARRATIVE: CASE EVENT DATE: 20151228
